FAERS Safety Report 6254082-5 (Version None)
Quarter: 2009Q3

REPORT INFORMATION
  Report Type: 
  Country: None (occurrence: None)
  Receive Date: 20090702
  Receipt Date: 20090624
  Transmission Date: 20100115
  Serious: Yes (Other)
  Sender: FDA-Public Use
  Company Number: JP-ASTRAZENECA-2009SE02421

PATIENT
  Age: 30 Year
  Sex: Male
  Weight: 75 kg

DRUGS (5)
  1. OMEPRAL [Suspect]
     Indication: GASTRITIS
     Route: 048
     Dates: start: 20090526, end: 20090529
  2. FAMOTIDINE [Concomitant]
     Route: 048
     Dates: start: 20090525
  3. MUCOSTA [Concomitant]
     Route: 048
     Dates: start: 20090525
  4. BUSCOPAN [Concomitant]
     Route: 048
     Dates: start: 20090525
  5. STROCAIN [Concomitant]
     Route: 048
     Dates: start: 20090526, end: 20090530

REACTIONS (3)
  - HAEMORRHAGE SUBCUTANEOUS [None]
  - MYALGIA [None]
  - OEDEMA [None]
